FAERS Safety Report 20162423 (Version 2)
Quarter: 2022Q1

REPORT INFORMATION
  Report Type: Report from Study
  Country: CN (occurrence: CN)
  Receive Date: 20211208
  Receipt Date: 20220120
  Transmission Date: 20220424
  Serious: No
  Sender: FDA-Public Use
  Company Number: CN-002147023-NVSC2021CN252154

PATIENT

DRUGS (2)
  1. RUXOLITINIB [Suspect]
     Active Substance: RUXOLITINIB
     Indication: Red blood cell count increased
     Dosage: 20 MG, BID
     Route: 048
     Dates: start: 2020
  2. RUXOLITINIB [Suspect]
     Active Substance: RUXOLITINIB
     Dosage: 25 MG, BID
     Route: 048
     Dates: start: 2020

REACTIONS (2)
  - Product use in unapproved indication [Unknown]
  - Weight increased [Unknown]

NARRATIVE: CASE EVENT DATE: 20200101
